FAERS Safety Report 18371063 (Version 2)
Quarter: 2021Q2

REPORT INFORMATION
  Report Type: Report from Study
  Country: EG (occurrence: EG)
  Receive Date: 20201012
  Receipt Date: 20210423
  Transmission Date: 20210717
  Serious: Yes (Death, Other)
  Sender: FDA-Public Use
  Company Number: EG-SUN PHARMACEUTICAL INDUSTRIES LTD-2020R1-263606

PATIENT
  Sex: Male

DRUGS (6)
  1. DOXORUBICIN [Suspect]
     Active Substance: DOXORUBICIN
     Indication: CHEMOTHERAPY
     Dosage: UNK
     Route: 065
  2. DOXORUBICIN [Suspect]
     Active Substance: DOXORUBICIN
     Indication: NEPHROBLASTOMA
  3. DACTINOMYCIN [Suspect]
     Active Substance: DACTINOMYCIN
     Indication: CHEMOTHERAPY
     Dosage: UNK
     Route: 065
  4. DACTINOMYCIN [Suspect]
     Active Substance: DACTINOMYCIN
     Indication: NEPHROBLASTOMA
  5. VINCRISTINE [Suspect]
     Active Substance: VINCRISTINE
     Indication: CHEMOTHERAPY
     Dosage: UNK
     Route: 065
  6. VINCRISTINE [Suspect]
     Active Substance: VINCRISTINE
     Indication: NEPHROBLASTOMA

REACTIONS (1)
  - Sepsis [Fatal]
